FAERS Safety Report 9882630 (Version 1)
Quarter: 2014Q1

REPORT INFORMATION
  Report Type: Spontaneous
  Country: US (occurrence: US)
  Receive Date: 20140207
  Receipt Date: 20140207
  Transmission Date: 20141002
  Serious: Yes (Hospitalization, Other)
  Sender: FDA-Public Use
  Company Number: US-ASTRAZENECA-2014SE07102

PATIENT
  Age: 684 Month
  Sex: 0

DRUGS (24)
  1. ZESTRIL [Suspect]
     Route: 048
  2. OMEPRAZOLE [Suspect]
     Indication: HYPERCHLORHYDRIA
     Route: 048
  3. FERROUS SULFATE [Concomitant]
     Indication: MINERAL SUPPLEMENTATION
  4. FOLIC ACID [Concomitant]
  5. MULTIVITAMIN [Concomitant]
     Indication: VITAMIN SUPPLEMENTATION
  6. B COMPLEX VITAMIN [Concomitant]
  7. PROPRANOLOL [Concomitant]
     Indication: HYPERTENSION
  8. LEVOTHYROXINE [Concomitant]
     Indication: THYROID DISORDER
  9. COLACE [Concomitant]
     Indication: LAXATIVE SUPPORTIVE CARE
  10. MILK THISTLE [Concomitant]
     Indication: LIVER DISORDER
  11. SPIRONOLACTONE [Concomitant]
     Indication: DIURETIC THERAPY
  12. TEMAZEPAM [Concomitant]
     Indication: SLEEP DISORDER
  13. OXYCODONE [Concomitant]
     Indication: PAIN
  14. LYRICA [Concomitant]
     Indication: NEUROPATHY PERIPHERAL
  15. RIFAMPIN [Concomitant]
     Indication: STAPHYLOCOCCAL INFECTION
  16. RIFAMPIN [Concomitant]
     Indication: SKIN ULCER
  17. MINOCYCLINE [Concomitant]
     Indication: STAPHYLOCOCCAL INFECTION
  18. MINOCYCLINE [Concomitant]
     Indication: SKIN ULCER
  19. CYMBALTA [Concomitant]
     Indication: AFFECTIVE DISORDER
  20. CYMBALTA [Concomitant]
     Indication: PAIN
  21. METANX [Concomitant]
     Indication: PAIN
  22. METANX [Concomitant]
     Indication: NERVE INJURY
  23. SLOMAG [Concomitant]
  24. CIPROFLOXACIN HCL [Concomitant]
     Indication: WOUND

REACTIONS (26)
  - Osteomyelitis [Unknown]
  - Varices oesophageal [Unknown]
  - Immunodeficiency [Unknown]
  - Hepatic cirrhosis [Unknown]
  - Spleen disorder [Unknown]
  - Compression fracture [Unknown]
  - Wrist fracture [Unknown]
  - Nephrolithiasis [Unknown]
  - Fall [Unknown]
  - Tibia fracture [Unknown]
  - Fibula fracture [Unknown]
  - Anaemia [Unknown]
  - Hypertension [Unknown]
  - Thyroid disorder [Unknown]
  - Neuralgia [Unknown]
  - Staphylococcal infection [Unknown]
  - Ulcer [Unknown]
  - Pain [Unknown]
  - Psoriasis [Unknown]
  - Arthritis [Unknown]
  - Hyperthyroidism [Unknown]
  - Neuropathy peripheral [Unknown]
  - Hyperchlorhydria [Unknown]
  - Sleep disorder [Unknown]
  - Depression [Unknown]
  - Drug hypersensitivity [Unknown]
